FAERS Safety Report 24940252 (Version 2)
Quarter: 2025Q2

REPORT INFORMATION
  Report Type: Report from Study
  Country: US (occurrence: US)
  Receive Date: 20250207
  Receipt Date: 20250512
  Transmission Date: 20250716
  Serious: Yes (Hospitalization, Other)
  Sender: JOHNSON AND JOHNSON
  Company Number: US-JNJFOC-20250182351

PATIENT
  Age: 38 Year

DRUGS (1)
  1. REMICADE [Suspect]
     Active Substance: INFLIXIMAB
     Indication: Product used for unknown indication
     Route: 041
     Dates: start: 202007, end: 202201

REACTIONS (12)
  - Drug specific antibody [Recovered/Resolved]
  - Drug level decreased [Recovered/Resolved]
  - Lupus-like syndrome [Recovered/Resolved]
  - Device related thrombosis [Recovered/Resolved]
  - Central venous catheterisation [Recovered/Resolved]
  - Hepatic pain [Recovered/Resolved]
  - Dyspepsia [Recovered/Resolved]
  - Weight decreased [Recovered/Resolved]
  - Alopecia [Recovered/Resolved]
  - Infusion related reaction [Recovered/Resolved]
  - Dyspnoea [Recovered/Resolved]
  - Off label use [Unknown]

NARRATIVE: CASE EVENT DATE: 20220411
